FAERS Safety Report 7650171-9 (Version None)
Quarter: 2011Q3

REPORT INFORMATION
  Report Type: 
  Country: None (occurrence: None)
  Receive Date: 20110802
  Receipt Date: 20110720
  Transmission Date: 20111222
  Serious: Yes (Hospitalization)
  Sender: FDA-Public Use
  Company Number: US-ASTRAZENECA-2011SE43590

PATIENT
  Age: 21384 Day
  Sex: Female

DRUGS (4)
  1. PAROXETINE HCL [Concomitant]
     Route: 048
     Dates: start: 20070102
  2. SEROQUEL [Suspect]
     Route: 048
     Dates: start: 20070102
  3. DIOVAN [Concomitant]
     Dates: start: 20100222
  4. METFORMIN HCL [Concomitant]
     Dates: start: 20100222

REACTIONS (1)
  - LABILE HYPERTENSION [None]
